FAERS Safety Report 4455487-5 (Version None)
Quarter: 2004Q3

REPORT INFORMATION
  Report Type: 
  Country: None (occurrence: None)
  Receive Date: 20040917
  Receipt Date: 20040901
  Transmission Date: 20050211
  Serious: Yes (Death)
  Sender: FDA-Public Use
  Company Number: 203901

PATIENT
  Age: 69 Year
  Sex: Female

DRUGS (1)
  1. AVONEX [Suspect]
     Indication: MULTIPLE SCLEROSIS
     Dosage: 30 MCG QW IM
     Route: 030
     Dates: start: 20040601, end: 20040808

REACTIONS (1)
  - CARCINOMA [None]
